FAERS Safety Report 17179599 (Version 5)
Quarter: 2020Q1

REPORT INFORMATION
  Report Type: Spontaneous
  Country: BR (occurrence: BR)
  Receive Date: 20191219
  Receipt Date: 20200228
  Transmission Date: 20200409
  Serious: Yes (Hospitalization, Other)
  Sender: FDA-Public Use
  Company Number: BR-GLAXOSMITHKLINE-BR2019AMR225512

PATIENT
  Sex: Female
  Weight: 79 kg

DRUGS (2)
  1. SERETIDE [Suspect]
     Active Substance: FLUTICASONE PROPIONATE\SALMETEROL XINAFOATE
     Indication: ASTHMA
     Dosage: UNK
  2. AEROLIN [Suspect]
     Active Substance: ALBUTEROL
     Indication: ASTHMATIC CRISIS
     Dosage: UNK

REACTIONS (10)
  - Dyspnoea [Recovered/Resolved]
  - Asthmatic crisis [Recovered/Resolved]
  - Nasopharyngitis [Recovered/Resolved]
  - Dysphonia [Recovered/Resolved]
  - Product complaint [Unknown]
  - Glaucoma [Unknown]
  - Intraocular pressure increased [Recovered/Resolved]
  - Bronchitis [Recovered/Resolved]
  - Drug ineffective [Unknown]
  - Product use issue [Unknown]
